FAERS Safety Report 9317560 (Version 1)
Quarter: 2013Q2

REPORT INFORMATION
  Report Type: Spontaneous
  Country: US (occurrence: US)
  Receive Date: 20130530
  Receipt Date: 20130530
  Transmission Date: 20140414
  Serious: No
  Sender: FDA-Public Use
  Company Number: US-TEVA-408738USA

PATIENT
  Age: 54 Year
  Sex: Male

DRUGS (1)
  1. FENTANYL [Suspect]

REACTIONS (1)
  - Pain [Not Recovered/Not Resolved]
